FAERS Safety Report 5853561-X (Version None)
Quarter: 2008Q3

REPORT INFORMATION
  Report Type: 
  Country: None (occurrence: None)
  Receive Date: 20080822
  Receipt Date: 20080812
  Transmission Date: 20090109
  Serious: Yes (Death)
  Sender: FDA-Public Use
  Company Number: US-JNJFOC-20080803668

PATIENT
  Age: 3 Month
  Sex: Female

DRUGS (3)
  1. DEXTROMETHORPHAN HBR [Suspect]
     Indication: UPPER RESPIRATORY TRACT INFECTION
  2. DIPHENHYDRAMINE HCL [Suspect]
     Indication: UPPER RESPIRATORY TRACT INFECTION
  3. ATROPINE [Suspect]
     Indication: UPPER RESPIRATORY TRACT INFECTION

REACTIONS (1)
  - DRUG TOXICITY [None]
